FAERS Safety Report 16170347 (Version 2)
Quarter: 2019Q2

REPORT INFORMATION
  Report Type: Report from Study
  Country: GB (occurrence: GB)
  Receive Date: 20190408
  Receipt Date: 20190506
  Transmission Date: 20190711
  Serious: Yes (Hospitalization)
  Sender: FDA-Public Use
  Company Number: PHHY2018GB106565

PATIENT
  Sex: Male

DRUGS (4)
  1. SANDOSTATIN LAR DEPOT [Suspect]
     Active Substance: OCTREOTIDE ACETATE
     Indication: NEUROENDOCRINE TUMOUR
     Dosage: 20 MG, QMO
     Route: 030
  2. SANDOSTATIN LAR DEPOT [Suspect]
     Active Substance: OCTREOTIDE ACETATE
     Dosage: 30 MG, QMO (EVENRY 4 WEEKS)
     Route: 030
  3. VITAMIN D2 [Concomitant]
     Active Substance: ERGOCALCIFEROL
     Indication: PRODUCT USED FOR UNKNOWN INDICATION
     Dosage: UNK, QD
     Route: 065
  4. PICOLAX [Concomitant]
     Indication: PRODUCT USED FOR UNKNOWN INDICATION
     Dosage: UNK
     Route: 065

REACTIONS (21)
  - Abdominal discomfort [Unknown]
  - Feeling cold [Unknown]
  - Diarrhoea [Recovering/Resolving]
  - Miliaria [Unknown]
  - Pyrexia [Recovered/Resolved]
  - Gastritis [Unknown]
  - Flatulence [Unknown]
  - Abdominal distension [Unknown]
  - Haemorrhoids [Unknown]
  - Feeling hot [Unknown]
  - Influenza [Unknown]
  - Abdominal pain [Unknown]
  - Malaise [Unknown]
  - Eczema [Unknown]
  - Chills [Unknown]
  - Rash [Unknown]
  - Infection [Unknown]
  - Pruritus [Unknown]
  - Oropharyngeal pain [Unknown]
  - Dry skin [Unknown]
  - Drug hypersensitivity [Unknown]
